FAERS Safety Report 6240849-6 (Version None)
Quarter: 2009Q2

REPORT INFORMATION
  Report Type: 
  Country: None (occurrence: None)
  Receive Date: 20090619
  Receipt Date: 20090605
  Transmission Date: 20091009
  Serious: Yes (Death, Hospitalization)
  Sender: FDA-Public Use
  Company Number: KADN20090040

PATIENT
  Age: 20 Year
  Sex: Male
  Weight: 82 kg

DRUGS (5)
  1. MORPHINE [Suspect]
     Indication: DRUG USE FOR UNKNOWN INDICATION
     Dates: end: 20070101
  2. ACETAMINOPHEN AND HYDROCODONE BITARTRATE [Suspect]
     Indication: DRUG USE FOR UNKNOWN INDICATION
     Dates: end: 20070101
  3. ASPIRIN [Suspect]
     Indication: DRUG USE FOR UNKNOWN INDICATION
     Dates: end: 20070101
  4. ETHANOL [Suspect]
     Indication: DRUG USE FOR UNKNOWN INDICATION
     Dates: end: 20070101
  5. INSPECIFIED NSAIDS [Concomitant]

REACTIONS (16)
  - AGGRESSION [None]
  - BLOOD CREATINE PHOSPHOKINASE INCREASED [None]
  - BLOOD CREATININE INCREASED [None]
  - BLOOD PRESSURE DIASTOLIC INCREASED [None]
  - BRAIN OEDEMA [None]
  - COMPLETED SUICIDE [None]
  - DRUG SCREEN POSITIVE [None]
  - HEART RATE INCREASED [None]
  - HEPATIC FAILURE [None]
  - HYPOGLYCAEMIA [None]
  - INTENTIONAL OVERDOSE [None]
  - INTERNATIONAL NORMALISED RATIO INCREASED [None]
  - PROTHROMBIN TIME PROLONGED [None]
  - RESPIRATORY RATE INCREASED [None]
  - TROPONIN INCREASED [None]
  - UNRESPONSIVE TO STIMULI [None]
